FAERS Safety Report 14664266 (Version 1)
Quarter: 2018Q1

REPORT INFORMATION
  Report Type: Spontaneous
  Country: US (occurrence: US)
  Receive Date: 20180321
  Receipt Date: 20180321
  Transmission Date: 20180509
  Serious: No
  Sender: FDA-Public Use
  Company Number: US-BAYER-2018-042996

PATIENT
  Age: 80 Year
  Sex: Female

DRUGS (16)
  1. CITRACAL PETITES [Suspect]
     Active Substance: CALCIUM CITRATE
     Dosage: 6 DF, QD
     Route: 048
     Dates: end: 20180302
  2. PANTOPRAZOLE [Concomitant]
     Active Substance: PANTOPRAZOLE
  3. METOCLOPRAM [Concomitant]
     Active Substance: METOCLOPRAMIDE
  4. TYLENOL PM [Concomitant]
     Active Substance: ACETAMINOPHEN\DIPHENHYDRAMINE
  5. MIRALAX [Suspect]
     Active Substance: POLYETHYLENE GLYCOL 3350
     Indication: CONSTIPATION
     Dosage: UNK
  6. LOSARTAN. [Concomitant]
     Active Substance: LOSARTAN
  7. BIOTIN [Concomitant]
     Active Substance: BIOTIN
  8. BAYER WOMENS [Suspect]
     Active Substance: ASPIRIN\CALCIUM CARBONATE
     Dosage: 1 DF, QD
  9. ALEVE [Suspect]
     Active Substance: NAPROXEN SODIUM
  10. HYDRALAZINE [Concomitant]
     Active Substance: HYDRALAZINE HYDROCHLORIDE
  11. ALLEGRA [Concomitant]
     Active Substance: FEXOFENADINE HYDROCHLORIDE
  12. RANITIDINE. [Concomitant]
     Active Substance: RANITIDINE
  13. ONE A DAY WOMEN^S [Concomitant]
     Active Substance: MINERALS\VITAMINS
  14. VITAMIN D [Concomitant]
     Active Substance: CHOLECALCIFEROL
  15. CARVEDILOL. [Concomitant]
     Active Substance: CARVEDILOL
  16. FLONASE [Concomitant]
     Active Substance: FLUTICASONE PROPIONATE

REACTIONS (6)
  - Extra dose administered [Unknown]
  - Underdose [Unknown]
  - Off label use [Unknown]
  - Vomiting [Unknown]
  - Constipation [Recovered/Resolved]
  - Product use in unapproved indication [Unknown]
